FAERS Safety Report 7453281-4 (Version None)
Quarter: 2011Q2

REPORT INFORMATION
  Report Type: 
  Country: None (occurrence: None)
  Receive Date: 20110502
  Receipt Date: 20101206
  Transmission Date: 20111010
  Serious: No
  Sender: FDA-Public Use
  Company Number: US-ASTRAZENECA-2010SE57786

PATIENT
  Age: 719 Month
  Sex: Female
  Weight: 93.4 kg

DRUGS (9)
  1. POTASSIUM [Concomitant]
  2. LYRICA [Concomitant]
     Indication: FIBROMYALGIA
  3. TRAZODONE HCL [Concomitant]
     Indication: INSOMNIA
  4. NEXIUM [Suspect]
     Indication: GASTROOESOPHAGEAL REFLUX DISEASE
     Route: 048
     Dates: start: 20020101, end: 20100701
  5. CELEBREX [Concomitant]
     Indication: ARTHRITIS
  6. ZOLPIDEM [Concomitant]
     Indication: INSOMNIA
  7. GABAPENTIN [Concomitant]
     Indication: NEUROPATHY PERIPHERAL
  8. SYMBICORT [Concomitant]
     Indication: CHRONIC OBSTRUCTIVE PULMONARY DISEASE
  9. LOVAZA [Concomitant]

REACTIONS (3)
  - MALAISE [None]
  - DRUG DOSE OMISSION [None]
  - GASTROOESOPHAGEAL REFLUX DISEASE [None]
